FAERS Safety Report 4366747-0 (Version None)
Quarter: 2004Q2

REPORT INFORMATION
  Report Type: 
  Country: None (occurrence: None)
  Receive Date: 20040526
  Receipt Date: 20040526
  Transmission Date: 20050107
  Serious: Yes (Life-Threatening, Other)
  Sender: FDA-Public Use
  Company Number: None

PATIENT
  Age: 2 Month
  Sex: Female
  Weight: 5 kg

DRUGS (2)
  1. ZANTAC [Suspect]
     Indication: GASTROOESOPHAGEAL REFLUX DISEASE
     Dosage: OVERDOSE
     Dates: start: 20030113, end: 20030123
  2. ZANTAC [Suspect]
     Indication: INFANT
     Dosage: OVERDOSE
     Dates: start: 20030113, end: 20030123

REACTIONS (5)
  - ANAEMIA [None]
  - GRANULOCYTOPENIA [None]
  - INSOMNIA [None]
  - IRRITABILITY [None]
  - MEDICATION ERROR [None]
